FAERS Safety Report 10740789 (Version 3)
Quarter: 2015Q3

REPORT INFORMATION
  Report Type: Spontaneous
  Country: JP (occurrence: JP)
  Receive Date: 20150127
  Receipt Date: 20150727
  Transmission Date: 20151125
  Serious: Yes (Other)
  Sender: FDA-Public Use
  Company Number: JP-BAYER-2015-005994

PATIENT
  Age: 62 Year
  Sex: Female
  Weight: 66 kg

DRUGS (7)
  1. DECADRON [Concomitant]
     Active Substance: DEXAMETHASONE
  2. LOPERAMIDE [Concomitant]
     Active Substance: LOPERAMIDE
     Indication: DIARRHOEA
     Dosage: DAILY DOSE 2 MG
     Route: 048
  3. COCARL [Concomitant]
     Active Substance: ACETAMINOPHEN
     Indication: ANALGESIC THERAPY
     Dosage: DAILY DOSE 600 MG
     Route: 048
  4. GOSHAJINKIGAN [Concomitant]
     Active Substance: HERBALS
     Indication: HYPOAESTHESIA
     Dosage: DAILY DOSE 7.5 G
     Route: 048
  5. ELENTAL [Concomitant]
     Active Substance: MINERALS\VITAMINS
     Dosage: DAILY DOSE 30 G
     Route: 048
  6. MICARDIS [Concomitant]
     Active Substance: TELMISARTAN
     Indication: SECONDARY HYPERTENSION
     Dosage: DAILY DOSE 40 MG
     Route: 048
  7. STIVARGA [Suspect]
     Active Substance: REGORAFENIB
     Indication: COLON CANCER
     Dosage: 120 MG, QD
     Route: 048
     Dates: start: 20150105, end: 20150113

REACTIONS (4)
  - Metastases to skin [Not Recovered/Not Resolved]
  - Blood albumin decreased [None]
  - Activated partial thromboplastin time prolonged [None]
  - Nausea [Not Recovered/Not Resolved]

NARRATIVE: CASE EVENT DATE: 20150110
